FAERS Safety Report 10629974 (Version 2)
Quarter: 2014Q4

REPORT INFORMATION
  Report Type: Spontaneous
  Country: US (occurrence: US)
  Receive Date: 20141205
  Receipt Date: 20141205
  Transmission Date: 20150529
  Serious: Yes (Hospitalization, Other)
  Sender: FDA-Public Use
  Company Number: US-BRISTOL-MYERS SQUIBB COMPANY-21556378

PATIENT
  Age: 77 Year
  Sex: Female

DRUGS (1)
  1. YERVOY [Suspect]
     Active Substance: IPILIMUMAB
     Indication: MALIGNANT MELANOMA
     Dosage: 141 MG, Q3WK
     Route: 042
     Dates: start: 20130906, end: 20131030

REACTIONS (3)
  - Hypopituitarism [Unknown]
  - Malaise [Unknown]
  - Colitis [Unknown]

NARRATIVE: CASE EVENT DATE: 20131119
